FAERS Safety Report 14062839 (Version 1)
Quarter: 2017Q4

REPORT INFORMATION
  Report Type: Spontaneous
  Country: US (occurrence: US)
  Receive Date: 20171009
  Receipt Date: 20171009
  Transmission Date: 20180321
  Serious: No
  Sender: FDA-Public Use
  Company Number: US-JNJFOC-20170707922

PATIENT
  Age: 31 Year
  Sex: Female
  Weight: 70.31 kg

DRUGS (2)
  1. VISINE A MULTI-ACTION EYE ALLERGY RELIEF [Suspect]
     Active Substance: NAPHAZOLINE HYDROCHLORIDE\PHENIRAMINE MALEATE
     Route: 047
  2. VISINE A MULTI-ACTION EYE ALLERGY RELIEF [Suspect]
     Active Substance: NAPHAZOLINE HYDROCHLORIDE\PHENIRAMINE MALEATE
     Indication: EYE PRURITUS
     Dosage: 1 DROP IN EACH EYE TWO TIMES
     Route: 047
     Dates: start: 201707

REACTIONS (6)
  - Skin disorder [Recovering/Resolving]
  - Eye swelling [Recovering/Resolving]
  - Eye discharge [Recovering/Resolving]
  - Eyelid margin crusting [Recovering/Resolving]
  - Eye disorder [Recovering/Resolving]
  - Eye irritation [Recovering/Resolving]
